FAERS Safety Report 23364023 (Version 1)
Quarter: 2024Q1

REPORT INFORMATION
  Report Type: Spontaneous
  Country: FR (occurrence: FR)
  Receive Date: 20240104
  Receipt Date: 20240104
  Transmission Date: 20240410
  Serious: Yes (Other)
  Sender: FDA-Public Use
  Company Number: FR-INCYTE CORPORATION-2023IN011994

PATIENT

DRUGS (8)
  1. TAFASITAMAB [Suspect]
     Active Substance: TAFASITAMAB
     Indication: Diffuse large B-cell lymphoma
     Dosage: UNK
     Route: 065
     Dates: end: 202307
  2. TAFASITAMAB [Suspect]
     Active Substance: TAFASITAMAB
     Dosage: 840 MILLIGRAM
     Route: 065
     Dates: start: 20230826
  3. TAFASITAMAB [Suspect]
     Active Substance: TAFASITAMAB
     Dosage: UNK
     Route: 065
     Dates: start: 202309
  4. TAFASITAMAB [Suspect]
     Active Substance: TAFASITAMAB
     Dosage: 880 MILLIGRAM
     Route: 065
  5. TAFASITAMAB [Suspect]
     Active Substance: TAFASITAMAB
     Dosage: 920 MILLIGRAM
     Route: 065
  6. TAFASITAMAB [Suspect]
     Active Substance: TAFASITAMAB
     Dosage: C5 TO C12 : D1 D15 TO 840 MG (WEIGHT -)
     Route: 065
  7. TAFASITAMAB [Suspect]
     Active Substance: TAFASITAMAB
     Dosage: C13: D1
     Route: 065
  8. TAFASITAMAB [Suspect]
     Active Substance: TAFASITAMAB
     Dosage: C14: D1 D15
     Route: 065

REACTIONS (5)
  - Spinal cord injury lumbar [Recovering/Resolving]
  - Neutropenia [Unknown]
  - COVID-19 [Unknown]
  - Weight increased [Unknown]
  - Fatigue [Unknown]
